FAERS Safety Report 13680801 (Version 1)
Quarter: 2017Q2

REPORT INFORMATION
  Report Type: Report from Study
  Country: AU (occurrence: AU)
  Receive Date: 20170623
  Receipt Date: 20170623
  Transmission Date: 20170830
  Serious: Yes (Hospitalization, Other)
  Sender: FDA-Public Use
  Company Number: AU-BRISTOL-MYERS SQUIBB COMPANY-BMS-2017-054079

PATIENT
  Age: 73 Year
  Sex: Female

DRUGS (7)
  1. MACITENTAN [Concomitant]
     Active Substance: MACITENTAN
     Indication: PRODUCT USED FOR UNKNOWN INDICATION
     Dosage: 10 MG, UNK
     Route: 065
     Dates: start: 201512
  2. BLINDED APIXABAN [Suspect]
     Active Substance: APIXABAN
     Indication: SCLERODERMA
     Dosage: 2.5 MG, BID
     Route: 048
     Dates: start: 20151209, end: 20170608
  3. BLINDED PLACEBO [Suspect]
     Active Substance: INVESTIGATIONAL PRODUCT
     Indication: PULMONARY ARTERIAL HYPERTENSION
     Route: 065
  4. NEXIUM [Concomitant]
     Active Substance: ESOMEPRAZOLE MAGNESIUM
     Indication: PRODUCT USED FOR UNKNOWN INDICATION
     Dosage: 40 MG, UNK
     Route: 065
     Dates: start: 201512
  5. LIPITOR [Concomitant]
     Active Substance: ATORVASTATIN CALCIUM
     Indication: PRODUCT USED FOR UNKNOWN INDICATION
     Dosage: 20 MG, QD
     Route: 065
     Dates: start: 201512
  6. BLINDED APIXABAN [Suspect]
     Active Substance: APIXABAN
     Indication: PULMONARY ARTERIAL HYPERTENSION
     Route: 065
  7. BLINDED PLACEBO [Suspect]
     Active Substance: INVESTIGATIONAL PRODUCT
     Indication: SCLERODERMA
     Dosage: 2.5 MG, BID
     Route: 048
     Dates: start: 20151209, end: 20170608

REACTIONS (4)
  - Diverticulum [Unknown]
  - Duodenal vascular ectasia [Unknown]
  - Anaemia [Unknown]
  - Epistaxis [Unknown]

NARRATIVE: CASE EVENT DATE: 20170613
